FAERS Safety Report 14373037 (Version 3)
Quarter: 2018Q1

REPORT INFORMATION
  Report Type: Report from Study
  Country: CO (occurrence: CO)
  Receive Date: 20180110
  Receipt Date: 20180312
  Transmission Date: 20180509
  Serious: Yes (Other)
  Sender: FDA-Public Use
  Company Number: PHHY2018CO001204

PATIENT
  Sex: Female

DRUGS (1)
  1. ENTRESTO [Suspect]
     Active Substance: SACUBITRIL\VALSARTAN
     Indication: CARDIAC FAILURE
     Dosage: 50 MG (24MG OF SACUBITRIL AND 26MG OF VALSARTAN), Q12H
     Route: 048
     Dates: start: 20170806

REACTIONS (4)
  - Tachycardia [Unknown]
  - Choking [Unknown]
  - Choking sensation [Unknown]
  - Malaise [Unknown]
